FAERS Safety Report 7019598-2 (Version None)
Quarter: 2010Q3

REPORT INFORMATION
  Report Type: 
  Country: None (occurrence: None)
  Receive Date: 20100928
  Receipt Date: 20100928
  Transmission Date: 20110219
  Serious: Yes (Hospitalization)
  Sender: FDA-Public Use
  Company Number: None

PATIENT
  Age: 78 Year
  Sex: Male
  Weight: 52.6 kg

DRUGS (1)
  1. PHENYTOIN [Suspect]
     Indication: CONVULSION
     Dosage: 300 MG HS PO
     Route: 048
     Dates: start: 20100528, end: 20100623

REACTIONS (7)
  - ANTICONVULSANT DRUG LEVEL INCREASED [None]
  - CONFUSIONAL STATE [None]
  - DROOLING [None]
  - GAIT DISTURBANCE [None]
  - LETHARGY [None]
  - MENTAL STATUS CHANGES [None]
  - SEDATION [None]
